FAERS Safety Report 9226502 (Version 2)
Quarter: 2013Q2

REPORT INFORMATION
  Report Type: Spontaneous
  Country: US (occurrence: US)
  Receive Date: 20130412
  Receipt Date: 20130507
  Transmission Date: 20140414
  Serious: Yes (Other)
  Sender: FDA-Public Use
  Company Number: US-AMGEN-USASP2013024244

PATIENT
  Age: 36 Year
  Sex: Female
  Weight: 78.45 kg

DRUGS (1)
  1. ENBREL [Suspect]
     Indication: RHEUMATOID ARTHRITIS
     Dosage: 50 MG, QWK
     Route: 058
     Dates: start: 20130222, end: 20130308

REACTIONS (9)
  - Somnolence [Unknown]
  - Fatigue [Unknown]
  - Skin ulcer [Recovering/Resolving]
  - Oedema peripheral [Not Recovered/Not Resolved]
  - Blister [Recovering/Resolving]
  - Pollakiuria [Unknown]
  - Skin fissures [Not Recovered/Not Resolved]
  - Rash vesicular [Recovered/Resolved]
  - Drug hypersensitivity [Unknown]
